FAERS Safety Report 7778107-0 (Version None)
Quarter: 2011Q3

REPORT INFORMATION
  Report Type: 
  Country: None (occurrence: None)
  Receive Date: 20110926
  Receipt Date: 20110920
  Transmission Date: 20111222
  Serious: Yes (Hospitalization, Disabling, Other)
  Sender: FDA-Public Use
  Company Number: US-BAYER-200915948NA

PATIENT
  Age: 34 Year
  Sex: Male

DRUGS (8)
  1. BETASERON [Suspect]
     Route: 058
  2. BETASERON [Suspect]
     Route: 058
  3. BETASERON [Suspect]
     Dosage: BETAJECT
     Route: 058
  4. BETASERON [Suspect]
     Indication: RELAPSING-REMITTING MULTIPLE SCLEROSIS
     Route: 058
     Dates: start: 20090201
  5. BETASERON [Suspect]
     Dosage: 8 MIU, QOD
     Route: 058
     Dates: start: 20090305
  6. MOTRIN [Concomitant]
     Indication: PREMEDICATION
  7. PROVIGIL [Suspect]
     Indication: FATIGUE
     Route: 065
  8. PROVIGIL [Suspect]
     Route: 065

REACTIONS (29)
  - TESTICULAR CYST [None]
  - LOSS OF CONSCIOUSNESS [None]
  - ERYTHEMA [None]
  - INJECTION SITE REACTION [None]
  - SCREAMING [None]
  - TESTICULAR PAIN [None]
  - HYPOAESTHESIA [None]
  - MOBILITY DECREASED [None]
  - INJECTION SITE HAEMORRHAGE [None]
  - ANGER [None]
  - INJECTION SITE PAIN [None]
  - DEMENTIA ALZHEIMER'S TYPE [None]
  - URINARY INCONTINENCE [None]
  - CHEST PAIN [None]
  - PARAESTHESIA [None]
  - INFLUENZA LIKE ILLNESS [None]
  - CHILLS [None]
  - DEMENTIA [None]
  - THINKING ABNORMAL [None]
  - DEPRESSION [None]
  - FATIGUE [None]
  - PALPITATIONS [None]
  - ADVERSE EVENT [None]
  - EXCORIATION [None]
  - MULTIPLE SCLEROSIS [None]
  - INJECTION SITE RASH [None]
  - MOOD SWINGS [None]
  - AGGRESSION [None]
  - CEREBROVASCULAR ACCIDENT [None]
